FAERS Safety Report 20614917 (Version 1)
Quarter: 2022Q1

REPORT INFORMATION
  Report Type: Other
  Country: US (occurrence: None)
  Receive Date: 20220321
  Receipt Date: 20220321
  Transmission Date: 20220424
  Serious: Yes (Death)
  Sender: FDA-Public Use
  Company Number: US-ROCHE-3043587

PATIENT
  Sex: Female

DRUGS (2)
  1. OCREVUS [Suspect]
     Active Substance: OCRELIZUMAB
     Indication: Primary progressive multiple sclerosis
     Dosage: 300 MG (2 VIAL)?DATE OF TREATMENT: 23/JUN/2021, 08/JUL/2021; LAST DATE OF INFUSION WAS 14/JUL/2021
     Route: 042
     Dates: start: 20210623, end: 20210708
  2. LISINOPRIL [Concomitant]
     Active Substance: LISINOPRIL

REACTIONS (2)
  - Urosepsis [Fatal]
  - Cardiac arrest [Fatal]
